FAERS Safety Report 4279134-0 (Version None)
Quarter: 2004Q1

REPORT INFORMATION
  Report Type: 
  Country: None (occurrence: None)
  Receive Date: 20040122
  Receipt Date: 20030112
  Transmission Date: 20041129
  Serious: Yes (Hospitalization)
  Sender: FDA-Public Use
  Company Number: KDL054349

PATIENT
  Age: 51 Year
  Sex: Female
  Weight: 52.2 kg

DRUGS (4)
  1. EPOGEN [Suspect]
     Indication: ANAEMIA OF MALIGNANT DISEASE
     Dosage: 40000 U, WEEKLY, SC
     Route: 058
     Dates: start: 20030813, end: 20030901
  2. DOCETAXEL [Concomitant]
  3. CARBOPLATIN [Concomitant]
  4. MORPHINE [Concomitant]

REACTIONS (5)
  - ANAEMIA [None]
  - APLASIA PURE RED CELL [None]
  - BIOPSY BONE MARROW ABNORMAL [None]
  - EOSINOPHILIA [None]
  - SERUM FERRITIN INCREASED [None]
